FAERS Safety Report 8222029 (Version 3)
Quarter: 2018Q3

REPORT INFORMATION
  Report Type: Spontaneous
  Country: PL (occurrence: PL)
  Receive Date: 20111102
  Receipt Date: 20180720
  Transmission Date: 20181010
  Serious: Yes (Hospitalization)
  Sender: FDA-Public Use
  Company Number: PL-PFIZER INC-2011265723

PATIENT
  Age: 56 Year
  Sex: Female

DRUGS (1)
  1. ATORVASTATIN CALCIUM. [Suspect]
     Active Substance: ATORVASTATIN CALCIUM
     Indication: HYPERCHOLESTEROLAEMIA
     Dosage: 20 MG, SINGLE EVENING DOSE

REACTIONS (4)
  - Systemic lupus erythematosus [Recovering/Resolving]
  - Lupus-like syndrome [Recovering/Resolving]
  - Transaminases increased [Unknown]
  - Dermatomyositis [Recovering/Resolving]
